FAERS Safety Report 15401585 (Version 1)
Quarter: 2018Q3

REPORT INFORMATION
  Report Type: Spontaneous
  Country: US (occurrence: US)
  Receive Date: 20180914
  Receipt Date: 20180914
  Transmission Date: 20181010
  Serious: Yes (Life-Threatening, Hospitalization, Disabling)
  Sender: FDA-Public Use
  Company Number: None

PATIENT
  Age: 77 Year
  Sex: Male
  Weight: 80.29 kg

DRUGS (1)
  1. CVS HEALTH SINUS RELIEF [Suspect]
     Active Substance: OXYMETAZOLINE HYDROCHLORIDE
     Indication: SINUSITIS
     Dates: start: 20181111

REACTIONS (7)
  - Headache [None]
  - Pseudomonas infection [None]
  - Deafness [None]
  - Hypoacusis [None]
  - Muscle disorder [None]
  - Ear pain [None]
  - Dysphagia [None]

NARRATIVE: CASE EVENT DATE: 20160105
